FAERS Safety Report 7380876-9 (Version None)
Quarter: 2011Q1

REPORT INFORMATION
  Report Type: 
  Country: None (occurrence: None)
  Receive Date: 20110329
  Receipt Date: 20110315
  Transmission Date: 20110831
  Serious: Yes (Hospitalization)
  Sender: FDA-Public Use
  Company Number: PHHY2011DE07908

PATIENT

DRUGS (1)
  1. VOLTAREN [Suspect]
     Indication: ARTHROPATHY
     Dosage: 30 CAPSULES WITHIN PERIOD OF 10 DAYS
     Route: 048

REACTIONS (3)
  - PARESIS [None]
  - STRABISMUS [None]
  - DIPLOPIA [None]
